FAERS Safety Report 25904692 (Version 1)
Quarter: 2025Q4

REPORT INFORMATION
  Report Type: Spontaneous
  Country: CN (occurrence: CN)
  Receive Date: 20251010
  Receipt Date: 20251010
  Transmission Date: 20260117
  Serious: Yes (Hospitalization, Other)
  Sender: NOVARTIS
  Company Number: CN-002147023-NVSC2025CN151887

PATIENT
  Age: 86 Year
  Sex: Male
  Weight: 65 kg

DRUGS (1)
  1. OXCARBAZEPINE [Suspect]
     Active Substance: OXCARBAZEPINE
     Indication: Epilepsy
     Dosage: 0.3 G, BID
     Route: 048
     Dates: start: 20250819, end: 20250919

REACTIONS (2)
  - Myelosuppression [Recovering/Resolving]
  - Depressed level of consciousness [Unknown]

NARRATIVE: CASE EVENT DATE: 20250901
